FAERS Safety Report 6694633-X (Version None)
Quarter: 2010Q2

REPORT INFORMATION
  Report Type: 
  Country: None (occurrence: None)
  Receive Date: 20100423
  Receipt Date: 20100413
  Transmission Date: 20101027
  Serious: Yes (Other)
  Sender: FDA-Public Use
  Company Number: US-JNJFOC-20100201731

PATIENT
  Sex: Female
  Weight: 68.04 kg

DRUGS (5)
  1. REMICADE [Suspect]
     Indication: RHEUMATOID ARTHRITIS
     Dosage: ONCE EVERY 5 TO 6 WEEKS
     Route: 042
  2. REMICADE [Suspect]
     Dosage: ONCE EVERY 5 TO 6 WEEKS
     Route: 042
  3. REMICADE [Suspect]
     Dosage: ONCE EVERY 5 TO 6 WEEKS
     Route: 042
  4. BENADRYL [Concomitant]
     Indication: PREMEDICATION
  5. TYLENOL-500 [Concomitant]
     Indication: PREMEDICATION

REACTIONS (10)
  - CHILLS [None]
  - DYSPNOEA [None]
  - FEELING ABNORMAL [None]
  - FEELING COLD [None]
  - HYPOTENSION [None]
  - INFUSION RELATED REACTION [None]
  - PAIN [None]
  - PYREXIA [None]
  - TREMOR [None]
  - VOMITING [None]
